FAERS Safety Report 6750085-2 (Version None)
Quarter: 2010Q2

REPORT INFORMATION
  Report Type: 
  Country: None (occurrence: None)
  Receive Date: 20100601
  Receipt Date: 20100519
  Transmission Date: 20101027
  Serious: Yes (Other)
  Sender: FDA-Public Use
  Company Number: PHHY2009JP39508

PATIENT
  Sex: Female
  Weight: 44 kg

DRUGS (3)
  1. DIOVAN [Suspect]
     Indication: GLOMERULONEPHRITIS
     Dosage: 40 MG, QD
     Route: 048
     Dates: start: 20070806, end: 20071212
  2. DIOVAN [Suspect]
     Dosage: 60 MG, QD
     Route: 048
     Dates: start: 20071213, end: 20090825
  3. ALLEGRA [Concomitant]
     Indication: URTICARIA CHRONIC
     Dosage: 120 MG, UNK
     Route: 048
     Dates: start: 20061108, end: 20090909

REACTIONS (4)
  - DRUG EXPOSURE DURING PREGNANCY [None]
  - INDUCED LABOUR [None]
  - NORMAL NEWBORN [None]
  - OEDEMA [None]
